FAERS Safety Report 7445258-X (Version None)
Quarter: 2011Q2

REPORT INFORMATION
  Report Type: 
  Country: None (occurrence: None)
  Receive Date: 20110427
  Receipt Date: 20110427
  Transmission Date: 20111010
  Serious: Yes (Hospitalization)
  Sender: FDA-Public Use
  Company Number: None

PATIENT
  Sex: Male
  Weight: 121 kg

DRUGS (8)
  1. COMBIVENT [Concomitant]
  2. METOPROLOL TARTRATE [Concomitant]
  3. IRINOTECAN (CPT-11, CAMPTOSAR) [Suspect]
     Dosage: 130 MG
  4. CISPLATIN [Suspect]
     Dosage: 75 MG
  5. SIMVASTATIN [Concomitant]
  6. VITAMIN D [Concomitant]
  7. ASPIRIN [Concomitant]
  8. ZANTAC [Concomitant]

REACTIONS (1)
  - CEREBROVASCULAR ACCIDENT [None]
